FAERS Safety Report 5215865-3 (Version None)
Quarter: 2007Q1

REPORT INFORMATION
  Report Type: 
  Country: None (occurrence: None)
  Receive Date: 20070123
  Receipt Date: 20070116
  Transmission Date: 20070707
  Serious: Yes (Hospitalization)
  Sender: FDA-Public Use
  Company Number: GB-GLAXOSMITHKLINE-B0454309A

PATIENT
  Age: 30 Year
  Sex: Female

DRUGS (11)
  1. FLIXOTIDE [Suspect]
     Dosage: 4PUFF TWICE PER DAY
     Route: 055
  2. SERETIDE [Suspect]
     Dosage: 4PUFF TWICE PER DAY
     Route: 055
  3. VENTOLIN [Suspect]
     Dosage: 4PUFF TWICE PER DAY
     Route: 055
  4. BRICANYL [Concomitant]
     Dosage: 2.5MGML FOUR TIMES PER DAY
  5. BRICANYL [Concomitant]
     Route: 055
  6. PREDNISOLONE [Concomitant]
  7. THEOPHYLLINE [Concomitant]
     Dosage: 200MCG TWICE PER DAY
  8. DURAGESIC-100 [Concomitant]
  9. NEURONTIN [Concomitant]
     Dosage: 800MG THREE TIMES PER DAY
  10. UNKNOWN MEDICATION [Concomitant]
     Dosage: 3MG TWICE PER DAY
  11. TELFAST [Concomitant]
     Dosage: 180MG PER DAY

REACTIONS (6)
  - BLOOD POTASSIUM DECREASED [None]
  - DYSPNOEA [None]
  - HEART RATE INCREASED [None]
  - HYPERSENSITIVITY [None]
  - PARAESTHESIA [None]
  - PARALYSIS [None]
